FAERS Safety Report 9712660 (Version 1)
Quarter: 2013Q4

REPORT INFORMATION
  Report Type: Spontaneous
  Country: US (occurrence: None)
  Receive Date: 20131111
  Receipt Date: 20131111
  Transmission Date: 20140711
  Serious: No
  Sender: FDA-Public Use
  Company Number: None

PATIENT
  Sex: 0

DRUGS (1)
  1. ALBUTEROL SULFATE INHALATION SOLUTION 0.083% [Suspect]
     Dosage: LOT #?A3A34A

REACTIONS (4)
  - Eye infection [None]
  - Back pain [None]
  - Inflammation [None]
  - Nasal disorder [None]
